FAERS Safety Report 9691037 (Version 2)
Quarter: 2014Q1

REPORT INFORMATION
  Report Type: Spontaneous
  Country: MX (occurrence: MX)
  Receive Date: 20131115
  Receipt Date: 20140227
  Transmission Date: 20141002
  Serious: Yes (Hospitalization, Other)
  Sender: FDA-Public Use
  Company Number: MX-ELI_LILLY_AND_COMPANY-MX201311001669

PATIENT
  Age: 49 Year
  Sex: Female

DRUGS (3)
  1. HUMULIN N [Suspect]
     Indication: PRODUCT USED FOR UNKNOWN INDICATION
     Dosage: 30 DF, EACH MORNING
     Route: 065
     Dates: start: 201307
  2. HUMULIN N [Suspect]
     Dosage: 20 DF, EACH EVENING
     Route: 065
     Dates: start: 201307
  3. EXFORGE [Concomitant]
     Indication: HYPERTENSION
     Dosage: UNK UNK, QD
     Route: 065

REACTIONS (3)
  - Shock [Unknown]
  - Blood glucose increased [Unknown]
  - Drug ineffective [Recovered/Resolved]
